FAERS Safety Report 4489481-5 (Version None)
Quarter: 2004Q4

REPORT INFORMATION
  Report Type: 
  Country: None (occurrence: None)
  Receive Date: 20041028
  Receipt Date: 20041016
  Transmission Date: 20050328
  Serious: Yes (Other)
  Sender: FDA-Public Use
  Company Number: URSO-2004-024

PATIENT
  Age: 38 Year
  Sex: Female

DRUGS (2)
  1. URSO [Suspect]
     Indication: LIVER DISORDER
     Dates: start: 20031001
  2. MAZINDOL [Concomitant]

REACTIONS (8)
  - HEPATIC FIBROSIS [None]
  - HEPATIC NECROSIS [None]
  - HEPATITIS [None]
  - HYPERTENSION [None]
  - LIVER DISORDER [None]
  - LYMPHOCYTE STIMULATION TEST POSITIVE [None]
  - OBESITY [None]
  - PROTHROMBIN TIME PROLONGED [None]
